FAERS Safety Report 7915719-5 (Version None)
Quarter: 2011Q4

REPORT INFORMATION
  Report Type: 
  Country: None (occurrence: None)
  Receive Date: 20111115
  Receipt Date: 20111107
  Transmission Date: 20120403
  Serious: Yes (Hospitalization)
  Sender: FDA-Public Use
  Company Number: JP-GLAXOSMITHKLINE-B0761894A

PATIENT
  Sex: Male

DRUGS (1)
  1. LAMICTAL [Suspect]
     Indication: BIPOLAR DISORDER RELAPSE PROPHYLAXIS
     Dosage: 25MG PER DAY
     Route: 048
     Dates: start: 20111025, end: 20111105

REACTIONS (4)
  - PYREXIA [None]
  - C-REACTIVE PROTEIN INCREASED [None]
  - RASH [None]
  - LIVER FUNCTION TEST ABNORMAL [None]
